FAERS Safety Report 20129687 (Version 2)
Quarter: 2022Q3

REPORT INFORMATION
  Report Type: Spontaneous
  Country: CZ (occurrence: CZ)
  Receive Date: 20211130
  Receipt Date: 20220729
  Transmission Date: 20221027
  Serious: Yes (Hospitalization, Other)
  Sender: FDA-Public Use
  Company Number: CZ-Accord-245820

PATIENT
  Age: 59 Year
  Sex: Female
  Weight: 64.9 kg

DRUGS (14)
  1. CLOZAPINE [Suspect]
     Active Substance: CLOZAPINE
     Indication: Schizophrenia
     Dosage: CLOZAPINE WAS INCREASED TO 500 MG, DISCHARGED HOME WITH THE PROSPECT OF REDUCING CLOZAPINE
  2. ARIPIPRAZOLE [Suspect]
     Active Substance: ARIPIPRAZOLE
     Indication: Schizophrenia
  3. QUETIAPINE FUMARATE [Suspect]
     Active Substance: QUETIAPINE FUMARATE
     Indication: Schizophrenia
  4. RISPERIDONE [Suspect]
     Active Substance: RISPERIDONE
     Indication: Schizophrenia
  5. PALIPERIDONE PALMITATE [Suspect]
     Active Substance: PALIPERIDONE PALMITATE
     Indication: Schizophrenia
     Dosage: 100 MG, QMO (LONG-ACTING INJECTABLE)
     Dates: end: 200907
  6. SERTINDOLE [Suspect]
     Active Substance: SERTINDOLE
     Indication: Schizophrenia
  7. HALOPERIDOL [Suspect]
     Active Substance: HALOPERIDOL
     Indication: Schizophrenia
     Dosage: 4 MG
  8. LEVOMEPROMAZINE [Suspect]
     Active Substance: LEVOMEPROMAZINE
     Indication: Schizophrenia
  9. OLANZAPINE [Suspect]
     Active Substance: OLANZAPINE
     Indication: Schizophrenia
  10. BREXPIPRAZOLE [Suspect]
     Active Substance: BREXPIPRAZOLE
     Indication: Schizophrenia
     Dosage: INCREASED INCREASED TO 4 MG DAILY, INCREASED TO 111 MG DAILY AND CROSS-DISCONTINUED OVER 12 DAYS
  11. FLUPENTIXOL DIHYDROCHLORIDE [Suspect]
     Active Substance: FLUPENTIXOL DIHYDROCHLORIDE
     Indication: Schizophrenia
     Dates: end: 200907
  12. RISPERIDONE [Suspect]
     Active Substance: RISPERIDONE
     Indication: Schizophrenia
  13. PALIPERIDONE PALMITATE [Suspect]
     Active Substance: PALIPERIDONE PALMITATE
     Indication: Schizophrenia
     Dosage: 50 MG, BIW
  14. LURASIDONE [Concomitant]
     Active Substance: LURASIDONE
     Indication: Schizophrenia
     Dosage: MAXIMUM DOSE OF 148 MG PER DAY.

REACTIONS (10)
  - Weight increased [Recovered/Resolved]
  - Depression [Unknown]
  - Tremor [Recovered/Resolved]
  - Hyperprolactinaemia [Recovered/Resolved]
  - Hypotension [Recovered/Resolved]
  - Lethargy [Unknown]
  - Therapy non-responder [Unknown]
  - Sedation complication [Recovered/Resolved]
  - Treatment noncompliance [Unknown]
  - Fatigue [Unknown]

NARRATIVE: CASE EVENT DATE: 20090701
